FAERS Safety Report 9282144 (Version 1)
Quarter: 2013Q2

REPORT INFORMATION
  Report Type: Spontaneous
  Country: US (occurrence: None)
  Receive Date: 20130508
  Receipt Date: 20130508
  Transmission Date: 20140414
  Serious: Yes (Other)
  Sender: FDA-Public Use
  Company Number: None

PATIENT
  Age: 40 None
  Sex: Female

DRUGS (1)
  1. INSULIN ASPART [Suspect]
     Indication: DIABETES MELLITUS
     Dosage: 2 UNITS, SS, SC
     Route: 058
     Dates: start: 20110312

REACTIONS (1)
  - Diabetic ketoacidosis [None]
